FAERS Safety Report 12311458 (Version 1)
Quarter: 2016Q2

REPORT INFORMATION
  Report Type: Spontaneous
  Country: US (occurrence: US)
  Receive Date: 20160427
  Receipt Date: 20160427
  Transmission Date: 20160815
  Serious: No
  Sender: FDA-Public Use
  Company Number: US-BAYER-2016-080442

PATIENT
  Sex: Female

DRUGS (1)
  1. MIRENA [Suspect]
     Active Substance: LEVONORGESTREL
     Dosage: 20 MCG/24HR, CONT
     Route: 015

REACTIONS (6)
  - Stress [None]
  - Breast enlargement [None]
  - Acne [None]
  - Device use issue [None]
  - Nausea [None]
  - Emotional disorder [None]

NARRATIVE: CASE EVENT DATE: 201601
